FAERS Safety Report 14578768 (Version 1)
Quarter: 2018Q1

REPORT INFORMATION
  Report Type: Spontaneous
  Country: IT (occurrence: IT)
  Receive Date: 20180227
  Receipt Date: 20180227
  Transmission Date: 20180509
  Serious: Yes (Other)
  Sender: FDA-Public Use
  Company Number: IT-ALLERGAN-1809769US

PATIENT
  Age: 37 Year
  Sex: Female

DRUGS (1)
  1. EXOCIN 0.3% COLLIRIO, SOLUZIONE [Suspect]
     Active Substance: OFLOXACIN
     Indication: EYE INFECTION
     Dosage: 4 DF, QD
     Route: 047
     Dates: start: 20180212, end: 20180212

REACTIONS (4)
  - Erythema [Recovering/Resolving]
  - Conjunctival hyperaemia [Recovering/Resolving]
  - Eyelid oedema [Recovering/Resolving]
  - Drug hypersensitivity [Recovering/Resolving]

NARRATIVE: CASE EVENT DATE: 20180212
